FAERS Safety Report 15061110 (Version 1)
Quarter: 2018Q2

REPORT INFORMATION
  Report Type: Spontaneous
  Country: US (occurrence: US)
  Receive Date: 20180625
  Receipt Date: 20180625
  Transmission Date: 20180711
  Serious: Yes (Life-Threatening)
  Sender: FDA-Public Use
  Company Number: US-ROCHE-2015412

PATIENT
  Age: 74 Year
  Sex: Female
  Weight: 77.5 kg

DRUGS (11)
  1. VITAMIN B12 [Concomitant]
     Active Substance: CYANOCOBALAMIN
     Route: 048
  2. GABAPENTINE [Concomitant]
     Active Substance: GABAPENTIN
     Route: 048
     Dates: start: 20171010
  3. MACROBID (UNITED STATES) [Concomitant]
     Route: 048
     Dates: end: 20171001
  4. IMODIUM [Concomitant]
     Active Substance: LOPERAMIDE HYDROCHLORIDE
     Indication: DIARRHOEA
     Route: 048
     Dates: start: 201701
  5. XELODA [Suspect]
     Active Substance: CAPECITABINE
     Dosage: ONGOING
     Route: 048
     Dates: start: 20160505
  6. LACTOBACILLUS [Concomitant]
     Active Substance: LACTOBACILLUS ACIDOPHILUS
     Route: 048
     Dates: start: 2015
  7. VITAMIN D3 [Concomitant]
     Active Substance: CHOLECALCIFEROL
     Dosage: 1000 UNIT
     Route: 048
     Dates: start: 2014
  8. VITAMIN B6 [Concomitant]
     Active Substance: PYRIDOXINE HYDROCHLORIDE
     Route: 048
     Dates: start: 20161115
  9. ASPIRIN. [Concomitant]
     Active Substance: ASPIRIN
     Route: 048
     Dates: start: 2014
  10. GARLIC. [Concomitant]
     Active Substance: GARLIC
     Route: 048
     Dates: start: 201610
  11. XELODA [Suspect]
     Active Substance: CAPECITABINE
     Indication: COLON CANCER
     Dosage: ONGOING
     Route: 048
     Dates: start: 20161112

REACTIONS (2)
  - Palmar-plantar erythrodysaesthesia syndrome [Not Recovered/Not Resolved]
  - Burning sensation [Unknown]

NARRATIVE: CASE EVENT DATE: 20161202
